FAERS Safety Report 15761447 (Version 2)
Quarter: 2019Q1

REPORT INFORMATION
  Report Type: Spontaneous
  Country: US (occurrence: US)
  Receive Date: 20181226
  Receipt Date: 20190311
  Transmission Date: 20190417
  Serious: Yes (Hospitalization, Disabling, Other)
  Sender: FDA-Public Use
  Company Number: US-009507513-1812USA009176

PATIENT
  Age: 15 Year
  Sex: Female
  Weight: 86.17 kg

DRUGS (2)
  1. NEXPLANON [Suspect]
     Active Substance: ETONOGESTREL
     Dosage: 1 ROD
     Route: 059
     Dates: start: 20160212, end: 20180423
  2. MINOCYCLINE [Concomitant]
     Active Substance: MINOCYCLINE\MINOCYCLINE HYDROCHLORIDE
     Indication: ACNE
     Dosage: UNK
     Route: 048
     Dates: start: 201708, end: 201709

REACTIONS (7)
  - Acne [Unknown]
  - Tinnitus [Not Recovered/Not Resolved]
  - Concussion [Unknown]
  - Intracranial pressure increased [Recovered/Resolved]
  - Visual impairment [Not Recovered/Not Resolved]
  - Pyrexia [Unknown]
  - Migraine [Not Recovered/Not Resolved]

NARRATIVE: CASE EVENT DATE: 20161225
